FAERS Safety Report 24395626 (Version 1)
Quarter: 2024Q4

REPORT INFORMATION
  Report Type: Spontaneous
  Country: US (occurrence: US)
  Receive Date: 20241004
  Receipt Date: 20241004
  Transmission Date: 20250115
  Serious: No
  Sender: ALEXION PHARMACEUTICALS
  Company Number: US-AstraZeneca-CH-00708805A

PATIENT

DRUGS (4)
  1. VOYDEYA [Suspect]
     Active Substance: DANICOPAN
     Indication: Paroxysmal nocturnal haemoglobinuria
     Dosage: UNK UNK, TID
     Route: 065
  2. VOYDEYA [Suspect]
     Active Substance: DANICOPAN
     Indication: Extravascular haemolysis
     Dosage: UNK UNK, TID
  3. VOYDEYA [Suspect]
     Active Substance: DANICOPAN
     Dosage: UNK UNK, TID
     Route: 065
  4. VOYDEYA [Suspect]
     Active Substance: DANICOPAN
     Dosage: UNK UNK, TID

REACTIONS (1)
  - Haemoglobin decreased [Unknown]
